FAERS Safety Report 6436460-4 (Version None)
Quarter: 2009Q4

REPORT INFORMATION
  Report Type: 
  Country: None (occurrence: None)
  Receive Date: 20091110
  Receipt Date: 20091110
  Transmission Date: 20100525
  Serious: Yes (Life-Threatening)
  Sender: FDA-Public Use
  Company Number: None

PATIENT
  Sex: Female
  Weight: 80 kg

DRUGS (1)
  1. METHYLENE BLUE 10 MG/ML [Suspect]
     Indication: PARATHYROIDECTOMY
     Dosage: 420 MG ONCE IV BOLUS
     Route: 040
     Dates: start: 20091028, end: 20091028

REACTIONS (7)
  - DELIRIUM [None]
  - OFF LABEL USE [None]
  - PYREXIA [None]
  - RESPIRATORY FAILURE [None]
  - SYSTOLIC HYPERTENSION [None]
  - TACHYCARDIA [None]
  - THYROTOXIC CRISIS [None]
